FAERS Safety Report 5509544-2 (Version None)
Quarter: 2007Q4

REPORT INFORMATION
  Report Type: 
  Country: None (occurrence: None)
  Receive Date: 20071029
  Receipt Date: 20070816
  Transmission Date: 20080405
  Serious: No
  Sender: FDA-Public Use
  Company Number: 012993

PATIENT
  Age: 63 Year
  Sex: Male

DRUGS (13)
  1. PRIALT [Suspect]
     Indication: BACK PAIN
     Dosage: UG, ONCE/HOUR, INTRATHCAL ; 0.27 UG, ONCE/HOUR, INTRATHECAL
     Route: 037
     Dates: start: 20070314, end: 20070321
  2. PRIALT [Suspect]
     Indication: BACK PAIN
     Dosage: UG, ONCE/HOUR, INTRATHCAL ; 0.27 UG, ONCE/HOUR, INTRATHECAL
     Route: 037
     Dates: start: 20070321
  3. ANTIDEPRESSANTS [Concomitant]
  4. VENLAFAXINE HCL [Concomitant]
  5. BUSPAR [Concomitant]
  6. ALL OTHER THERAPEUTIC PRODUCTS [Concomitant]
  7. PROSCAR [Concomitant]
  8. TRAZODONE HCL [Concomitant]
  9. ZETIA [Concomitant]
  10. ASCORBIC ACID [Concomitant]
  11. VITAMIN B [Concomitant]
  12. FENTANYL /00174602/ (FENTANYL CITRATE) [Concomitant]
  13. LIDODERM [Concomitant]

REACTIONS (6)
  - AMNESIA [None]
  - CONFUSIONAL STATE [None]
  - FATIGUE [None]
  - GAIT DISTURBANCE [None]
  - HALLUCINATION, VISUAL [None]
  - PARAESTHESIA ORAL [None]
